FAERS Safety Report 21032936 (Version 3)
Quarter: 2022Q3

REPORT INFORMATION
  Report Type: Spontaneous
  Country: JP (occurrence: JP)
  Receive Date: 20220701
  Receipt Date: 20220824
  Transmission Date: 20221026
  Serious: No
  Sender: FDA-Public Use
  Company Number: JP-TAIHO-AB220429_P_1

PATIENT
  Age: 7 Decade
  Sex: Male

DRUGS (3)
  1. ABRAXANE [Suspect]
     Active Substance: PACLITAXEL
     Indication: Pancreatic carcinoma
     Dosage: DETAILS NOT REPORTED
     Route: 041
  2. ABRAXANE [Suspect]
     Active Substance: PACLITAXEL
  3. GEMCITABINE HYDROCHLORIDE [Concomitant]
     Active Substance: GEMCITABINE HYDROCHLORIDE
     Indication: Pancreatic carcinoma
     Dosage: DETAILS NOT REPORTED
     Route: 041

REACTIONS (1)
  - No adverse event [Unknown]
